FAERS Safety Report 20504840 (Version 1)
Quarter: 2022Q1

REPORT INFORMATION
  Report Type: Report from Study
  Country: JP (occurrence: JP)
  Receive Date: 20220223
  Receipt Date: 20220223
  Transmission Date: 20220423
  Serious: Yes (Death, Life-Threatening, Hospitalization, Other)
  Sender: FDA-Public Use
  Company Number: JP-JNJFOC-20210953121

PATIENT
  Age: 46 Year
  Sex: Female
  Weight: 42.2 kg

DRUGS (37)
  1. TRAMCET [Suspect]
     Active Substance: ACETAMINOPHEN\TRAMADOL
     Indication: Infusion site pain
     Dosage: P.R.N
     Route: 048
     Dates: start: 20190520
  2. TREPROSTINIL [Suspect]
     Active Substance: TREPROSTINIL
     Indication: Pulmonary arterial hypertension
     Dosage: 1NG/KG/MIM
     Route: 058
     Dates: start: 20190518, end: 20190518
  3. TREPROSTINIL [Suspect]
     Active Substance: TREPROSTINIL
     Indication: Pulmonary arterial hypertension
     Dosage: 4NG/KG/MIM
     Route: 058
     Dates: start: 20190528, end: 20190528
  4. TREPROSTINIL [Suspect]
     Active Substance: TREPROSTINIL
     Indication: Pulmonary arterial hypertension
     Dosage: 6NG/KG/MIM
     Route: 058
     Dates: start: 20190602, end: 20190602
  5. TREPROSTINIL [Suspect]
     Active Substance: TREPROSTINIL
     Indication: Pulmonary arterial hypertension
     Dosage: 9NG/KG/MIM
     Route: 058
     Dates: start: 20190611, end: 20190611
  6. TREPROSTINIL [Suspect]
     Active Substance: TREPROSTINIL
     Indication: Pulmonary arterial hypertension
     Dosage: 13NG/KG/MIM
     Route: 058
     Dates: start: 20190625, end: 20190625
  7. TREPROSTINIL [Suspect]
     Active Substance: TREPROSTINIL
     Indication: Pulmonary arterial hypertension
     Dosage: 18NG/KG/MIM
     Route: 058
     Dates: start: 20190709, end: 20190709
  8. TREPROSTINIL [Suspect]
     Active Substance: TREPROSTINIL
     Indication: Pulmonary arterial hypertension
     Dosage: 25NG/KG/MIM
     Route: 058
     Dates: start: 20190730, end: 20190730
  9. TREPROSTINIL [Suspect]
     Active Substance: TREPROSTINIL
     Indication: Pulmonary arterial hypertension
     Dosage: 26NG/KG/MIM
     Route: 058
     Dates: start: 20190820, end: 20190820
  10. TREPROSTINIL [Suspect]
     Active Substance: TREPROSTINIL
     Indication: Pulmonary arterial hypertension
     Dosage: 48NG/KG/MIM
     Route: 058
     Dates: start: 20191116, end: 20191116
  11. TREPROSTINIL [Suspect]
     Active Substance: TREPROSTINIL
     Indication: Pulmonary arterial hypertension
     Dosage: 51NG/KG/MIM
     Route: 058
     Dates: start: 20200220, end: 20200220
  12. TREPROSTINIL [Suspect]
     Active Substance: TREPROSTINIL
     Indication: Pulmonary arterial hypertension
     Dosage: 41NG/KG/MIM
     Route: 058
     Dates: start: 20200520, end: 20200520
  13. TREPROSTINIL [Suspect]
     Active Substance: TREPROSTINIL
     Indication: Pulmonary arterial hypertension
     Dosage: 40.8NG/KG/MIM
     Route: 058
     Dates: start: 20200804, end: 20200804
  14. TREPROSTINIL [Suspect]
     Active Substance: TREPROSTINIL
     Indication: Pulmonary arterial hypertension
     Dosage: 40.8NG/KG/MIM
     Route: 058
     Dates: start: 20201110, end: 20201110
  15. TREPROSTINIL [Suspect]
     Active Substance: TREPROSTINIL
     Indication: Pulmonary arterial hypertension
     Dosage: 40.8NG/KG/MIM
     Route: 058
     Dates: start: 20210120, end: 20210120
  16. OPSUMIT [Concomitant]
     Active Substance: MACITENTAN
     Indication: Pulmonary arterial hypertension
     Dosage: DOSE UNKNOWN
     Route: 048
     Dates: start: 201602, end: 20210202
  17. UPTRAVI [Concomitant]
     Active Substance: SELEXIPAG
     Indication: Pulmonary arterial hypertension
     Dosage: DOSE UNKNOWN
     Route: 048
     Dates: start: 201703, end: 20210202
  18. ADCIRCA [Concomitant]
     Active Substance: TADALAFIL
     Indication: Pulmonary arterial hypertension
     Dosage: DOSE UNKNOWN
     Route: 048
     Dates: start: 201604, end: 20210202
  19. LOSARTAN POTASSIUM [Concomitant]
     Active Substance: LOSARTAN POTASSIUM
     Indication: Pulmonary arterial hypertension
     Dosage: DOSE UNKNOWN
     Route: 048
     Dates: end: 20210120
  20. FERROUS SULFATE [Concomitant]
     Active Substance: FERROUS SULFATE
     Dosage: DOSE UNKNOWN
     Route: 048
     Dates: end: 20210202
  21. ALENDRONATE [Concomitant]
     Active Substance: ALENDRONATE SODIUM
     Dosage: DOSE UNKNOWN
     Route: 048
     Dates: end: 20210121
  22. CALONAL [Concomitant]
     Active Substance: ACETAMINOPHEN
     Indication: Infusion site pain
     Route: 048
     Dates: start: 20190520
  23. PRIMPERAN [Concomitant]
     Active Substance: METOCLOPRAMIDE HYDROCHLORIDE
     Indication: Prophylaxis
     Dosage: DOSE UNKNOWN,P.R.N
     Route: 048
     Dates: start: 20190520
  24. RINDERON VG [Concomitant]
     Active Substance: BETAMETHASONE VALERATE\GENTAMICIN SULFATE
     Indication: Infusion site pain
     Dosage: DOSE UNKNOWN
     Route: 061
     Dates: start: 20190520
  25. RINDERON VG [Concomitant]
     Active Substance: BETAMETHASONE VALERATE\GENTAMICIN SULFATE
     Indication: Infusion site pain
     Dosage: DOSE UNKNOWN
     Route: 061
     Dates: start: 20190528
  26. PREDONINE [Concomitant]
     Active Substance: PREDNISOLONE
     Dosage: DOSE UNKNOWN
     Route: 048
     Dates: end: 20210202
  27. PREDONINE [Concomitant]
     Active Substance: PREDNISOLONE
     Dosage: DOSE UNKNOWN
     Route: 048
  28. PREDNISOLONE [Concomitant]
     Active Substance: PREDNISOLONE
     Dosage: DOSE UNKNOWN
     Route: 048
     Dates: end: 20210112
  29. URSODIOL [Concomitant]
     Active Substance: URSODIOL
     Dosage: DOSE UNKNOWN
     Route: 048
     Dates: end: 20210119
  30. NEXIUM [Concomitant]
     Active Substance: ESOMEPRAZOLE MAGNESIUM
     Indication: Prophylaxis
     Dosage: DOSE UNKNOWN
     Route: 048
     Dates: end: 20210202
  31. FEXOFENADINE HYDROCHLORIDE [Concomitant]
     Active Substance: FEXOFENADINE HYDROCHLORIDE
     Dosage: DOSE UNKNOWN
     Route: 048
     Dates: end: 20210119
  32. MONTELUKAST [Concomitant]
     Active Substance: MONTELUKAST SODIUM
     Dosage: DOSE UNKNOWN
     Route: 048
     Dates: start: 20190529, end: 20190703
  33. BIOFERMIN [BACILLUS SUBTILIS;ENTEROCOCCUS FAECALIS;LACTOBACILLUS ACIDO [Concomitant]
     Indication: Prophylaxis
     Dosage: DOSE UNKNOWN
     Route: 048
     Dates: start: 20190625
  34. LOPERAMIDE HYDROCHLORIDE [Concomitant]
     Active Substance: LOPERAMIDE HYDROCHLORIDE
     Indication: Diarrhoea
     Dosage: DOSE UNKNOWN,P.R.N
     Route: 048
     Dates: start: 20190723
  35. SPIRONOLACTONE [Concomitant]
     Active Substance: SPIRONOLACTONE
     Dosage: DOSE UNKNOWN
     Route: 048
     Dates: start: 20190904, end: 20210202
  36. DIGOXIN [Concomitant]
     Active Substance: DIGOXIN
     Indication: Pulmonary arterial hypertension
     Dosage: DOSE UNKNOWN
     Route: 048
     Dates: start: 20200225, end: 20210202
  37. AZOSEMIDE [Concomitant]
     Active Substance: AZOSEMIDE
     Indication: Pulmonary arterial hypertension
     Dosage: DOSE UNKNOWN
     Route: 048
     Dates: start: 20191126, end: 20210202

REACTIONS (24)
  - Upper gastrointestinal haemorrhage [Fatal]
  - Wound secretion [Recovering/Resolving]
  - Wound dehiscence [Recovering/Resolving]
  - Postoperative wound infection [Recovering/Resolving]
  - Scleroderma [Unknown]
  - Sepsis [Unknown]
  - Septic shock [Unknown]
  - Hepatic cirrhosis [Unknown]
  - Cellulitis [Recovering/Resolving]
  - Pulmonary oedema [Not Recovered/Not Resolved]
  - Infusion site pain [Recovering/Resolving]
  - Infusion site swelling [Recovering/Resolving]
  - Leg amputation [Unknown]
  - Somnolence [Recovering/Resolving]
  - Pyrexia [Unknown]
  - Infusion site pruritus [Unknown]
  - Infusion site erythema [Recovering/Resolving]
  - Diarrhoea [Not Recovered/Not Resolved]
  - Product residue present [Recovering/Resolving]
  - Infusion site haemorrhage [Recovered/Resolved]
  - Vomiting [Unknown]
  - Abdominal hernia [Not Recovered/Not Resolved]
  - Erythema [Unknown]
  - Feeling hot [Unknown]

NARRATIVE: CASE EVENT DATE: 20190521
